FAERS Safety Report 24019735 (Version 1)
Quarter: 2024Q2

REPORT INFORMATION
  Report Type: Spontaneous
  Country: US (occurrence: US)
  Receive Date: 20240627
  Receipt Date: 20240627
  Transmission Date: 20240716
  Serious: Yes (Death, Other)
  Sender: FDA-Public Use
  Company Number: US-SERB S.A.S.-2158613

PATIENT
  Sex: Male

DRUGS (1)
  1. DIGIFAB [Suspect]
     Active Substance: OVINE DIGOXIN IMMUNE FAB
     Indication: Toxicity to various agents
     Route: 042

REACTIONS (2)
  - Death [Fatal]
  - Off label use [Fatal]
